FAERS Safety Report 4773426-4 (Version None)
Quarter: 2005Q3

REPORT INFORMATION
  Report Type: 
  Country: None (occurrence: None)
  Receive Date: 20050920
  Receipt Date: 20050908
  Transmission Date: 20060218
  Serious: Yes (Other)
  Sender: FDA-Public Use
  Company Number: FR-BRISTOL-MYERS SQUIBB COMPANY-13106109

PATIENT
  Sex: Male

DRUGS (1)
  1. ELISOR TABS [Suspect]
     Indication: TYPE IIA HYPERLIPIDAEMIA
     Dosage: ORIGINAL DOSE 20MG DAILY; INCREASED TO 40MG DAILY AT AN UNSPECIFIED DATE
     Route: 048
     Dates: start: 19930101, end: 20050101

REACTIONS (2)
  - BLOOD CREATINE PHOSPHOKINASE INCREASED [None]
  - CEREBROVASCULAR ACCIDENT [None]
